FAERS Safety Report 8639003 (Version 2)
Quarter: 2012Q4

REPORT INFORMATION
  Report Type: Report from Study
  Country: IT (occurrence: IT)
  Receive Date: 20120627
  Receipt Date: 20121008
  Transmission Date: 20130627
  Serious: Yes (Death, Other)
  Sender: FDA-Public Use
  Company Number: IT-CELGENEUS-083-21880-12062559

PATIENT

DRUGS (1)
  1. REVLIMID [Suspect]
     Indication: LYMPHOMA
     Dosage: 25 Milligram
     Route: 048
     Dates: start: 20090527, end: 20090608

REACTIONS (5)
  - Death [Fatal]
  - Pleural effusion [Unknown]
  - Sinus tachycardia [Unknown]
  - Anaemia [Unknown]
  - Hypotonia [Unknown]
